FAERS Safety Report 9061794 (Version 1)
Quarter: 2013Q1

REPORT INFORMATION
  Report Type: Spontaneous
  Country: JP (occurrence: JP)
  Receive Date: 20130204
  Receipt Date: 20130204
  Transmission Date: 20140127
  Serious: Yes (Other)
  Sender: FDA-Public Use
  Company Number: PHHY2013JP009940

PATIENT
  Sex: 0

DRUGS (2)
  1. NEORAL [Suspect]
     Indication: PROTEINURIA
     Dosage: 100 MG, UNK
     Route: 048
  2. OLMETEC [Concomitant]
     Indication: HYPERTENSION

REACTIONS (5)
  - Condition aggravated [Unknown]
  - Somnolence [Unknown]
  - Swelling [Unknown]
  - Dyspnoea [Unknown]
  - Weight increased [Unknown]
